FAERS Safety Report 8195807-1 (Version None)
Quarter: 2012Q1

REPORT INFORMATION
  Report Type: 
  Country: None (occurrence: None)
  Receive Date: 20120308
  Receipt Date: 20120305
  Transmission Date: 20120608
  Serious: Yes (Hospitalization)
  Sender: FDA-Public Use
  Company Number: US-BAYER-2012-018948

PATIENT
  Age: 50 Year
  Sex: Female
  Weight: 130.61 kg

DRUGS (11)
  1. PROPRANOLOL [Concomitant]
     Indication: HYPERTENSION
     Dosage: 60 MG
     Dates: start: 20080101
  2. VITAMIN D [Concomitant]
     Indication: MEDICAL DIET
     Dosage: 1000 U
     Dates: start: 20080101
  3. CELEBREX [Concomitant]
     Indication: ARTHRITIS
     Dosage: 200 MG
     Dates: start: 20100101
  4. ANALGESICS [Concomitant]
     Indication: HEADACHE
     Dosage: 2 TABS
     Dates: start: 20080101
  5. FISH OIL [Concomitant]
     Indication: MEDICAL DIET
     Dosage: 1000 MG
     Dates: start: 20100101
  6. OMEPRAZOLE [Concomitant]
     Indication: GASTROOESOPHAGEAL REFLUX DISEASE
     Dosage: 20 MG
     Dates: start: 20110101
  7. ZOLOFT [Concomitant]
     Indication: MENOPAUSAL SYMPTOMS
     Dosage: 100 MG
     Dates: start: 20090101
  8. GAS-X [Concomitant]
     Indication: FLATULENCE
     Dosage: 80 MG
     Dates: start: 20110101
  9. SORAFENIB (RAF KINASE INHIBITOR) [Suspect]
     Indication: BREAST CANCER
     Dosage: 200 MG, BID
     Route: 048
     Dates: start: 20120215, end: 20120217
  10. IXABEPILONE [Suspect]
     Indication: BREAST CANCER
     Dosage: 71 MG
     Route: 042
     Dates: start: 20120215, end: 20120215
  11. FERROUS SULFATE TAB [Concomitant]
     Indication: ANAEMIA
     Dosage: 325 MG
     Dates: start: 20110101

REACTIONS (1)
  - TUMOUR LYSIS SYNDROME [None]
